FAERS Safety Report 10408976 (Version 1)
Quarter: 2014Q3

REPORT INFORMATION
  Report Type: Spontaneous
  Country: IT (occurrence: None)
  Receive Date: 20140822
  Receipt Date: 20140822
  Transmission Date: 20150326
  Serious: Yes (Hospitalization)
  Sender: FDA-Public Use
  Company Number: 2014AP004074

PATIENT
  Age: 65 Year
  Sex: Female

DRUGS (1)
  1. CLARITHROMYCIN (CLARITHROMYCIN) TABLET, 250MG [Suspect]
     Active Substance: CLARITHROMYCIN
     Indication: OROPHARYNGEAL PLAQUE
     Route: 048
     Dates: start: 20140612, end: 20140613

REACTIONS (3)
  - Tongue disorder [None]
  - Lip disorder [None]
  - Swelling face [None]

NARRATIVE: CASE EVENT DATE: 20140613
